FAERS Safety Report 23766277 (Version 1)
Quarter: 2024Q2

REPORT INFORMATION
  Report Type: Report from Study
  Country: CH (occurrence: CH)
  Receive Date: 20240422
  Receipt Date: 20240422
  Transmission Date: 20240717
  Serious: Yes (Hospitalization)
  Sender: FDA-Public Use
  Company Number: CH-ABBVIE-5726578

PATIENT
  Sex: Male
  Weight: 104 kg

DRUGS (1)
  1. SKYRIZI [Suspect]
     Active Substance: RISANKIZUMAB-RZAA
     Indication: Psoriasis
     Route: 058
     Dates: start: 20211208

REACTIONS (2)
  - Peritonsillar abscess [Recovered/Resolved]
  - Tonsillitis [Recovered/Resolved]
